FAERS Safety Report 7520186-X (Version None)
Quarter: 2011Q2

REPORT INFORMATION
  Report Type: 
  Country: None (occurrence: None)
  Receive Date: 20110602
  Receipt Date: 20110202
  Transmission Date: 20111010
  Serious: No
  Sender: FDA-Public Use
  Company Number: US-BAYER-2011-014602

PATIENT
  Sex: Male
  Weight: 68 kg

DRUGS (5)
  1. SINGULAIR [Concomitant]
  2. SIMVASTATIN [Concomitant]
  3. ALEVE (CAPLET) [Suspect]
     Dosage: 1 DF, BID
     Route: 048
  4. FINASTERIDE [Concomitant]
  5. UROXATRAL [Concomitant]

REACTIONS (1)
  - NO ADVERSE EVENT [None]
